FAERS Safety Report 9843076 (Version 1)
Quarter: 2013Q4

REPORT INFORMATION
  Report Type: Spontaneous
  Country: US (occurrence: None)
  Receive Date: 20131219
  Receipt Date: 20131219
  Transmission Date: 20140711
  Serious: Yes (Disabling)
  Sender: FDA-Public Use
  Company Number: 163-20785-13064521

PATIENT
  Age: 63 Year
  Sex: Female

DRUGS (13)
  1. THALOMID (THALIDOMIDE) (200 MILLIGRAM, CAPSULES) [Suspect]
     Indication: PLASMA CELL MYELOMA
     Dosage: 200 MG, 1 IN 1 D, PO
     Route: 048
     Dates: start: 201103
  2. VELCADE (BORTEZOMIB) [Concomitant]
  3. CALCIUM (CALCIUM) [Concomitant]
  4. FOLIC ACID (FOLIC ACID) [Concomitant]
  5. PREDNISONE (PREDNISONE) [Concomitant]
  6. SYNTHROID (LEVOTHYROXINE SODIUM) [Concomitant]
  7. CLONIDINE (CLONIDINE) [Concomitant]
  8. DOXAZOSIN (DOXAZOSIN) [Concomitant]
  9. FUROSEMIDE (FUROSEMIDE) [Concomitant]
  10. VIT D (ERGOCALCIFEROL) [Concomitant]
  11. CARVEDILOL (CARVEDILOL) [Concomitant]
  12. OMEPRAZOLE (OMEPRAZOLE) [Concomitant]
  13. AMLODIPINE (AMLODIPINE) [Concomitant]

REACTIONS (5)
  - Neuropathy peripheral [None]
  - Hypoaesthesia [None]
  - Pain in extremity [None]
  - Cough [None]
  - Neck pain [None]
